FAERS Safety Report 5570536-9 (Version None)
Quarter: 2007Q4

REPORT INFORMATION
  Report Type: 
  Country: None (occurrence: None)
  Receive Date: 20071221
  Receipt Date: 20071217
  Transmission Date: 20080405
  Serious: Yes (Hospitalization)
  Sender: FDA-Public Use
  Company Number: US-AMGEN-US247350

PATIENT
  Sex: Male
  Weight: 75.8 kg

DRUGS (5)
  1. PROCRIT [Suspect]
     Indication: ANAEMIA
     Dates: start: 20040101
  2. ISOSORBIDE DINITRATE [Concomitant]
     Dates: end: 20070901
  3. TENORMIN [Concomitant]
     Route: 048
  4. CITALOPRAM HYDROBROMIDE [Concomitant]
  5. PROSCAR [Concomitant]

REACTIONS (3)
  - AUTONOMIC NERVOUS SYSTEM IMBALANCE [None]
  - INCORRECT DOSE ADMINISTERED [None]
  - SYNCOPE [None]
